FAERS Safety Report 8236034-9 (Version None)
Quarter: 2012Q1

REPORT INFORMATION
  Report Type: 
  Country: None (occurrence: None)
  Receive Date: 20120326
  Receipt Date: 20120319
  Transmission Date: 20120608
  Serious: Yes (Hospitalization)
  Sender: FDA-Public Use
  Company Number: JP-VERTEX PHARMACEUTICALS INC.-AE-2012-004084

PATIENT
  Age: 68 Year
  Sex: Female

DRUGS (4)
  1. PEGINTERFERON ALFA-2A [Concomitant]
     Route: 058
     Dates: start: 20120208
  2. TELAVIC (TELAPREVIR) [Suspect]
     Route: 048
     Dates: start: 20120208
  3. TELAVIC (TELAPREVIR) [Suspect]
     Route: 048
     Dates: start: 20120222
  4. REBETOL [Concomitant]
     Route: 048
     Dates: start: 20120208

REACTIONS (1)
  - DECREASED APPETITE [None]
